FAERS Safety Report 12312530 (Version 7)
Quarter: 2018Q4

REPORT INFORMATION
  Report Type: Spontaneous
  Country: CA (occurrence: CA)
  Receive Date: 20160428
  Receipt Date: 20181106
  Transmission Date: 20190204
  Serious: Yes (Hospitalization)
  Sender: FDA-Public Use
  Company Number: CA-ROCHE-1748893

PATIENT
  Age: 71 Year
  Sex: Female

DRUGS (26)
  1. RITUXAN [Suspect]
     Active Substance: RITUXIMAB
     Route: 042
  2. ENBREL [Suspect]
     Active Substance: ETANERCEPT
     Indication: RHEUMATOID ARTHRITIS
     Route: 058
  3. FOLIC ACID. [Suspect]
     Active Substance: FOLIC ACID
     Indication: PRODUCT USED FOR UNKNOWN INDICATION
     Route: 065
  4. HYDROCORTISONE. [Concomitant]
     Active Substance: HYDROCORTISONE
  5. HYZAAR [Concomitant]
     Active Substance: HYDROCHLOROTHIAZIDE\LOSARTAN POTASSIUM
  6. RITUXAN [Suspect]
     Active Substance: RITUXIMAB
     Indication: RHEUMATOID ARTHRITIS
     Route: 042
  7. ACTEMRA [Suspect]
     Active Substance: TOCILIZUMAB
     Indication: RHEUMATOID ARTHRITIS
     Route: 042
  8. METHOTREXATE SODIUM. [Suspect]
     Active Substance: METHOTREXATE SODIUM
     Route: 058
  9. PREDNISONE. [Suspect]
     Active Substance: PREDNISONE
     Indication: RHEUMATOID ARTHRITIS
     Route: 065
  10. APO-PREDNISONE [Suspect]
     Active Substance: PREDNISONE
     Indication: RHEUMATOID ARTHRITIS
     Route: 065
  11. APO-HYDROXYQUINE [Suspect]
     Active Substance: HYDROXYCHLOROQUINE SULFATE
     Indication: RHEUMATOID ARTHRITIS
     Route: 065
  12. ACETAMINOPHEN. [Suspect]
     Active Substance: ACETAMINOPHEN
     Indication: RHEUMATOID ARTHRITIS
     Route: 048
  13. METHOTREXATE. [Suspect]
     Active Substance: METHOTREXATE
     Indication: RHEUMATOID ARTHRITIS
     Route: 058
  14. METHYLPREDNISOLONE. [Concomitant]
     Active Substance: METHYLPREDNISOLONE
  15. HYDROMORPHONE HYDROCHLORIDE. [Suspect]
     Active Substance: HYDROMORPHONE HYDROCHLORIDE
     Indication: RHEUMATOID ARTHRITIS
     Route: 065
  16. METHOTREXATE SODIUM. [Suspect]
     Active Substance: METHOTREXATE SODIUM
     Indication: RHEUMATOID ARTHRITIS
     Dosage: THERAPY DURATION: 1 WEEK
     Route: 058
  17. APO-ACETAMINOPHEN [Suspect]
     Active Substance: ACETAMINOPHEN
     Indication: RHEUMATOID ARTHRITIS
     Route: 065
  18. HYDROXYCHLOROQUINE [Suspect]
     Active Substance: HYDROXYCHLOROQUINE
     Indication: RHEUMATOID ARTHRITIS
     Route: 065
  19. DILAUDID [Suspect]
     Active Substance: HYDROMORPHONE HYDROCHLORIDE
     Indication: RHEUMATOID ARTHRITIS
     Route: 065
  20. HUMIRA [Concomitant]
     Active Substance: ADALIMUMAB
  21. REMICADE [Concomitant]
     Active Substance: INFLIXIMAB
  22. PLAQUENIL [Suspect]
     Active Substance: HYDROXYCHLOROQUINE SULFATE
     Indication: RHEUMATOID ARTHRITIS
     Route: 065
  23. ENBREL [Suspect]
     Active Substance: ETANERCEPT
     Route: 065
  24. ORENCIA [Concomitant]
     Active Substance: ABATACEPT
  25. DIPHENHYDRAMINE HYDROCHLORIDE. [Concomitant]
     Active Substance: DIPHENHYDRAMINE HYDROCHLORIDE
  26. FOSAVANCE [Concomitant]
     Active Substance: ALENDRONATE SODIUM\CHOLECALCIFEROL

REACTIONS (32)
  - Drug intolerance [Unknown]
  - Drug effect decreased [Unknown]
  - Post procedural complication [Not Recovered/Not Resolved]
  - Monocyte count increased [Not Recovered/Not Resolved]
  - White blood cell count decreased [Not Recovered/Not Resolved]
  - Rheumatoid arthritis [Not Recovered/Not Resolved]
  - Synovitis [Not Recovered/Not Resolved]
  - Pain [Not Recovered/Not Resolved]
  - Arthritis [Not Recovered/Not Resolved]
  - Tinnitus [Not Recovered/Not Resolved]
  - Eye disorder [Not Recovered/Not Resolved]
  - Fatigue [Not Recovered/Not Resolved]
  - Glaucoma [Not Recovered/Not Resolved]
  - Condition aggravated [Not Recovered/Not Resolved]
  - Lymphocyte count increased [Not Recovered/Not Resolved]
  - Vision blurred [Not Recovered/Not Resolved]
  - Inflammation [Not Recovered/Not Resolved]
  - Lacrimation increased [Not Recovered/Not Resolved]
  - Eye pain [Not Recovered/Not Resolved]
  - Blood creatinine decreased [Not Recovered/Not Resolved]
  - Eye operation [Not Recovered/Not Resolved]
  - Photophobia [Not Recovered/Not Resolved]
  - Ocular procedural complication [Not Recovered/Not Resolved]
  - Eye discharge [Not Recovered/Not Resolved]
  - Headache [Not Recovered/Not Resolved]
  - Drug ineffective [Unknown]
  - Haematocrit decreased [Not Recovered/Not Resolved]
  - Haemoglobin decreased [Not Recovered/Not Resolved]
  - Nausea [Not Recovered/Not Resolved]
  - Neutrophil count decreased [Not Recovered/Not Resolved]
  - Nasopharyngitis [Not Recovered/Not Resolved]
  - Optic neuritis [Not Recovered/Not Resolved]
